FAERS Safety Report 18146134 (Version 3)
Quarter: 2020Q3

REPORT INFORMATION
  Report Type: Other
  Country: US (occurrence: US)
  Receive Date: 20200813
  Receipt Date: 20200908
  Transmission Date: 20201103
  Serious: Yes (Death, Other)
  Sender: FDA-Public Use
  Company Number: US-ROCHE-2653123

PATIENT
  Age: 48 Year
  Sex: Female

DRUGS (1)
  1. ACTEMRA [Suspect]
     Active Substance: TOCILIZUMAB
     Indication: SARS-COV-2 TEST POSITIVE
     Dosage: EVERY 24 HRS X 2
     Route: 042
     Dates: start: 20200626, end: 20200627

REACTIONS (6)
  - Urinary tract candidiasis [Not Recovered/Not Resolved]
  - Pneumonia [Not Recovered/Not Resolved]
  - Off label use [Unknown]
  - Circulatory collapse [Fatal]
  - Intentional product use issue [Unknown]
  - Stenotrophomonas infection [Not Recovered/Not Resolved]

NARRATIVE: CASE EVENT DATE: 20200626
